FAERS Safety Report 4538053-2 (Version None)
Quarter: 2004Q4

REPORT INFORMATION
  Report Type: 
  Country: None (occurrence: None)
  Receive Date: 20041223
  Receipt Date: 20041223
  Transmission Date: 20050328
  Serious: Yes (Life-Threatening, Hospitalization)
  Sender: FDA-Public Use
  Company Number: None

PATIENT
  Age: 24 Month
  Sex: Female
  Weight: 16.1481 kg

DRUGS (1)
  1. CYMBALTA [Suspect]
     Indication: ACCIDENTAL EXPOSURE
     Dosage: 180 MG ONCE ORAL
     Route: 048

REACTIONS (4)
  - ACCIDENTAL EXPOSURE [None]
  - MEDICATION ERROR [None]
  - SEROTONIN SYNDROME [None]
  - VOMITING [None]
